FAERS Safety Report 19471997 (Version 1)
Quarter: 2021Q2

REPORT INFORMATION
  Report Type: Spontaneous
  Country: FR (occurrence: FR)
  Receive Date: 20210629
  Receipt Date: 20210629
  Transmission Date: 20210717
  Serious: Yes (Death)
  Sender: FDA-Public Use
  Company Number: FR-TEVA-2021-FR-1925889

PATIENT
  Age: 61 Year
  Sex: Female
  Weight: 86 kg

DRUGS (4)
  1. ATENOLOL ACCORD HEALTHCARE 50 MG, COMPRIME SECABLE [Concomitant]
     Dosage: SCORED TABLET
  2. EPIRUBICINE [Suspect]
     Active Substance: EPIRUBICIN
     Route: 065
  3. CANDESARTAN HYDROCHLOROTHIAZIDE BIOGARAN [Concomitant]
     Active Substance: CANDESARTAN CILEXETIL\HYDROCHLOROTHIAZIDE
  4. ENDOXAN [Suspect]
     Active Substance: CYCLOPHOSPHAMIDE
     Route: 065

REACTIONS (2)
  - Acute myocardial infarction [Fatal]
  - Sudden death [Fatal]

NARRATIVE: CASE EVENT DATE: 20210319
